FAERS Safety Report 9973645 (Version 2)
Quarter: 2014Q2

REPORT INFORMATION
  Report Type: Spontaneous
  Country: JP (occurrence: JP)
  Receive Date: 20140306
  Receipt Date: 20140408
  Transmission Date: 20141212
  Serious: Yes (Other)
  Sender: FDA-Public Use
  Company Number: PHHY2014JP022326

PATIENT
  Age: 38 Year
  Sex: Female

DRUGS (2)
  1. APRESOLIN [Suspect]
     Indication: GESTATIONAL HYPERTENSION
     Route: 048
  2. MAGNESIUM SULFATE [Suspect]

REACTIONS (3)
  - Umbilical cord vascular disorder [Recovered/Resolved]
  - Maternal exposure during pregnancy [Unknown]
  - Normal newborn [Unknown]
